FAERS Safety Report 8166818-7 (Version None)
Quarter: 2012Q1

REPORT INFORMATION
  Report Type: 
  Country: None (occurrence: None)
  Receive Date: 20120227
  Receipt Date: 20120214
  Transmission Date: 20120608
  Serious: Yes (Other)
  Sender: FDA-Public Use
  Company Number: US-SANOFI-AVENTIS-2012SA010284

PATIENT
  Age: 45 Year
  Sex: Female

DRUGS (1)
  1. LOVENOX [Suspect]
     Dates: start: 20120101, end: 20120101

REACTIONS (7)
  - LOSS OF CONSCIOUSNESS [None]
  - HYPERSENSITIVITY [None]
  - VOMITING [None]
  - VISUAL IMPAIRMENT [None]
  - PETIT MAL EPILEPSY [None]
  - DIZZINESS [None]
  - HYPOTENSION [None]
